FAERS Safety Report 4556074-0 (Version None)
Quarter: 2005Q1

REPORT INFORMATION
  Report Type: 
  Country: None (occurrence: None)
  Receive Date: 20050119
  Receipt Date: 20041229
  Transmission Date: 20050727
  Serious: Yes (Other)
  Sender: FDA-Public Use
  Company Number: PHBS2004IN17423

PATIENT
  Age: 34 Year
  Sex: Male

DRUGS (1)
  1. VOVERAN [Suspect]
     Indication: PAIN
     Dosage: 75 MG, ONCE/SINGLE
     Route: 030

REACTIONS (4)
  - ABASIA [None]
  - ASTHENIA [None]
  - GAIT DISTURBANCE [None]
  - HYPOAESTHESIA [None]
